FAERS Safety Report 12663245 (Version 1)
Quarter: 2016Q3

REPORT INFORMATION
  Report Type: Spontaneous
  Country: US (occurrence: US)
  Receive Date: 20160818
  Receipt Date: 20160818
  Transmission Date: 20161109
  Serious: No
  Sender: FDA-Public Use
  Company Number: US-009507513-1608USA005735

PATIENT
  Age: 35 Year
  Sex: Female

DRUGS (1)
  1. GRASTEK [Suspect]
     Active Substance: PHLEUM PRATENSE POLLEN
     Dosage: UNK
     Route: 048

REACTIONS (3)
  - Nasal congestion [Recovered/Resolved]
  - Paraesthesia oral [Recovered/Resolved]
  - Cough [Recovered/Resolved]
